FAERS Safety Report 13912597 (Version 1)
Quarter: 2017Q3

REPORT INFORMATION
  Report Type: Spontaneous
  Country: US (occurrence: US)
  Receive Date: 20170828
  Receipt Date: 20170828
  Transmission Date: 20171127
  Serious: Yes (Congenital Anomaly, Other)
  Sender: FDA-Public Use
  Company Number: PHEH2017US027414

PATIENT

DRUGS (1)
  1. ZOFRAN ODT [Suspect]
     Active Substance: ONDANSETRON HYDROCHLORIDE
     Indication: FOETAL EXPOSURE DURING PREGNANCY
     Route: 064

REACTIONS (10)
  - Heart disease congenital [Unknown]
  - Ventricular septal defect [Unknown]
  - Foetal exposure during pregnancy [Unknown]
  - Patent ductus arteriosus [Unknown]
  - Right ventricular dysfunction [Unknown]
  - Atrial septal defect [Unknown]
  - Supraventricular tachycardia [Unknown]
  - Injury [Unknown]
  - Right ventricular dilatation [Unknown]
  - Left-to-right cardiac shunt [Unknown]
